FAERS Safety Report 14715315 (Version 7)
Quarter: 2019Q3

REPORT INFORMATION
  Report Type: Spontaneous
  Country: US (occurrence: US)
  Receive Date: 20180404
  Receipt Date: 20190912
  Transmission Date: 20191004
  Serious: Yes (Other)
  Sender: FDA-Public Use
  Company Number: US-PFIZER INC-2018135010

PATIENT
  Age: 56 Year
  Sex: Female

DRUGS (26)
  1. PREVACID [Suspect]
     Active Substance: LANSOPRAZOLE
     Dosage: UNK
     Route: 065
     Dates: start: 199701, end: 201801
  2. PROTONIX [Suspect]
     Active Substance: PANTOPRAZOLE SODIUM
     Indication: GASTROOESOPHAGEAL REFLUX DISEASE
     Dosage: UNK, AS DIRECTED
     Route: 048
     Dates: start: 199601, end: 201708
  3. DEXILANT [Suspect]
     Active Substance: DEXLANSOPRAZOLE
     Indication: GASTROOESOPHAGEAL REFLUX DISEASE
     Dosage: UNK, AS DIRECTED
     Route: 048
     Dates: start: 199601, end: 201708
  4. DEXILANT [Suspect]
     Active Substance: DEXLANSOPRAZOLE
     Dosage: 60 MG, DAILY
     Dates: start: 200902, end: 20180420
  5. LISINOPRIL. [Concomitant]
     Active Substance: LISINOPRIL
     Indication: HYPERTENSION
     Dosage: UNK
     Dates: start: 2017
  6. ALLOPURINOL. [Concomitant]
     Active Substance: ALLOPURINOL
     Indication: NEPHROLITHIASIS
     Dosage: UNK
     Dates: start: 20130629, end: 2017
  7. NEXIUM [Suspect]
     Active Substance: ESOMEPRAZOLE MAGNESIUM
     Indication: GASTROOESOPHAGEAL REFLUX DISEASE
     Dosage: UNK, AS DIRECTED
     Route: 048
     Dates: start: 199601, end: 201708
  8. PROTONIX [Suspect]
     Active Substance: PANTOPRAZOLE SODIUM
     Dosage: UNK
     Route: 048
     Dates: start: 199701, end: 201801
  9. PRILOSEC [Suspect]
     Active Substance: OMEPRAZOLE MAGNESIUM
     Dosage: UNK, AS DIRECTED
     Route: 048
     Dates: start: 19960601, end: 20170121
  10. PRILOSEC OTC [Suspect]
     Active Substance: OMEPRAZOLE MAGNESIUM
     Dosage: UNK, AS DIRECTED
     Route: 048
     Dates: start: 199601, end: 201708
  11. DEXILANT [Suspect]
     Active Substance: DEXLANSOPRAZOLE
     Dosage: UNK
     Route: 065
     Dates: start: 199701, end: 201801
  12. NEXIUM [Suspect]
     Active Substance: ESOMEPRAZOLE MAGNESIUM
     Dosage: 40 MG, DAILY
     Dates: start: 20170515, end: 20170520
  13. PRILOSEC [Suspect]
     Active Substance: OMEPRAZOLE MAGNESIUM
     Dosage: UNK
     Dates: start: 199701, end: 201801
  14. GABAPENTIN. [Concomitant]
     Active Substance: GABAPENTIN
     Indication: NEURALGIA
     Dosage: UNK
     Dates: start: 20100630, end: 2017
  15. TUMS ULTRA [Concomitant]
     Active Substance: CALCIUM CARBONATE
     Indication: ANTACID THERAPY
     Dosage: 1000 MG, UNK
     Dates: start: 20140825
  16. PROTONIX [Suspect]
     Active Substance: PANTOPRAZOLE SODIUM
     Dosage: 40 MG, DAILY
     Dates: start: 20000302, end: 20180420
  17. PREVACID 24 HR [Suspect]
     Active Substance: LANSOPRAZOLE
     Dosage: UNK, AS DIRECTED
     Route: 065
     Dates: start: 199601, end: 201708
  18. ZANTAC [Concomitant]
     Active Substance: RANITIDINE HYDROCHLORIDE
     Dosage: UNK
     Dates: start: 20160627, end: 2017
  19. NEXIUM [Suspect]
     Active Substance: ESOMEPRAZOLE MAGNESIUM
     Dosage: UNK
     Route: 048
     Dates: start: 199701, end: 201801
  20. NEXIUM 24HR [Suspect]
     Active Substance: ESOMEPRAZOLE MAGNESIUM
     Dosage: UNK, AS DIRECTED
     Route: 048
     Dates: end: 201708
  21. PRILOSEC [Suspect]
     Active Substance: OMEPRAZOLE MAGNESIUM
     Indication: GASTROOESOPHAGEAL REFLUX DISEASE
     Dosage: UNK, AS DIRECTED
     Route: 048
     Dates: start: 199601, end: 201708
  22. PRILOSEC [Suspect]
     Active Substance: OMEPRAZOLE MAGNESIUM
     Dosage: 40 MG, DAILY
     Dates: start: 19970601, end: 20180121
  23. LOSARTAN. [Concomitant]
     Active Substance: LOSARTAN
     Dosage: UNK
  24. PREVACID [Suspect]
     Active Substance: LANSOPRAZOLE
     Indication: GASTROOESOPHAGEAL REFLUX DISEASE
     Dosage: UNK, AS DIRECTED
     Route: 048
     Dates: start: 199601, end: 201708
  25. PREVACID [Suspect]
     Active Substance: LANSOPRAZOLE
     Dosage: 30 MG, DAILY
     Route: 065
     Dates: start: 19970101, end: 20180121
  26. ASPIRIN. [Concomitant]
     Active Substance: ASPIRIN
     Indication: PAIN
     Dosage: UNK
     Dates: start: 20100630, end: 2017

REACTIONS (6)
  - Acute kidney injury [Not Recovered/Not Resolved]
  - Tubulointerstitial nephritis [Not Recovered/Not Resolved]
  - Gastrooesophageal reflux disease [Not Recovered/Not Resolved]
  - Chronic kidney disease [Not Recovered/Not Resolved]
  - End stage renal disease [Not Recovered/Not Resolved]
  - Renal injury [Unknown]

NARRATIVE: CASE EVENT DATE: 201306
